FAERS Safety Report 5466937-X (Version None)
Quarter: 2007Q3

REPORT INFORMATION
  Report Type: 
  Country: None (occurrence: None)
  Receive Date: 20070921
  Receipt Date: 20070921
  Transmission Date: 20080115
  Serious: Yes (Hospitalization)
  Sender: FDA-Public Use
  Company Number: None

PATIENT
  Age: 80 Year
  Sex: Female
  Weight: 76.4 kg

DRUGS (1)
  1. METFORMIN HCL [Suspect]
     Indication: DIABETES MELLITUS
     Dosage: 500MG DAILY PO
     Route: 048
     Dates: start: 20070912, end: 20070912

REACTIONS (2)
  - ANAPHYLACTIC SHOCK [None]
  - PHARMACEUTICAL PRODUCT COMPLAINT [None]
